FAERS Safety Report 9267366 (Version 1)
Quarter: 2013Q2

REPORT INFORMATION
  Report Type: Spontaneous
  Country: US (occurrence: US)
  Receive Date: 20130502
  Receipt Date: 20130502
  Transmission Date: 20140414
  Serious: Yes (Death)
  Sender: FDA-Public Use
  Company Number: US-JNJFOC-20130416821

PATIENT
  Sex: 0

DRUGS (4)
  1. DOXIL [Suspect]
     Indication: PLASMA CELL MYELOMA
     Dosage: DAY 8 PER 28 DAY CYCLE
     Route: 042
  2. BORTEZOMIB [Suspect]
     Indication: PLASMA CELL MYELOMA
     Dosage: DAYS 1, 8 AND 15
     Route: 042
  3. CYCLOPHOSPHAMIDE [Suspect]
     Indication: PLASMA CELL MYELOMA
     Dosage: DAYS 1, 8, 15
     Route: 042
  4. DEXAMETHASONE [Suspect]
     Indication: PLASMA CELL MYELOMA
     Dosage: DAYS 1, 8, 15
     Route: 048

REACTIONS (1)
  - Death [Fatal]
